FAERS Safety Report 12118119 (Version 2)
Quarter: 2016Q2

REPORT INFORMATION
  Report Type: Spontaneous
  Country: IT (occurrence: IT)
  Receive Date: 20160226
  Receipt Date: 20160426
  Transmission Date: 20160815
  Serious: Yes (Hospitalization, Other)
  Sender: FDA-Public Use
  Company Number: IT-ACCORD-038131

PATIENT
  Age: 67 Year
  Sex: Male

DRUGS (9)
  1. LEVOFOLINIC ACID [Concomitant]
     Active Substance: LEVOLEUCOVORIN
     Indication: ADENOCARCINOMA GASTRIC
     Route: 042
     Dates: start: 20151130, end: 20151214
  2. FLUOROURACIL. [Suspect]
     Active Substance: FLUOROURACIL
     Indication: ADENOCARCINOMA GASTRIC
     Dosage: ALSO RECEIVED 2790 MG CYCLICAL BY INTRAVENOUS DRIP ON SAME DATE
     Route: 040
     Dates: start: 20151130
  3. SELOKEN [Concomitant]
     Active Substance: METOPROLOL
  4. PANTOPRAZOLE [Concomitant]
     Active Substance: PANTOPRAZOLE SODIUM
  5. TORVAST [Concomitant]
     Active Substance: ATORVASTATIN
  6. CARDIOASPIRIN [Concomitant]
     Active Substance: ASPIRIN
  7. TRIATEC [Concomitant]
     Active Substance: RAMIPRIL
  8. EUCREAS [Concomitant]
     Active Substance: METFORMIN HYDROCHLORIDE\VILDAGLIPTIN
  9. GANFORT [Concomitant]
     Active Substance: BIMATOPROST\TIMOLOL

REACTIONS (4)
  - Dyspepsia [Unknown]
  - Abdominal pain upper [Unknown]
  - Weight decreased [Unknown]
  - Neutropenia [Unknown]

NARRATIVE: CASE EVENT DATE: 20151207
